FAERS Safety Report 6812408-5 (Version None)
Quarter: 2010Q2

REPORT INFORMATION
  Report Type: 
  Country: None (occurrence: None)
  Receive Date: 20100628
  Receipt Date: 20100614
  Transmission Date: 20101027
  Serious: Yes (Other)
  Sender: FDA-Public Use
  Company Number: 7008084

PATIENT
  Age: 24 Year
  Sex: Male

DRUGS (1)
  1. REBIF [Suspect]
     Indication: MULTIPLE SCLEROSIS
     Dosage: 44 MCG, 3 IN 7 D, SUBCUTANEOUS
     Route: 058
     Dates: start: 20090911

REACTIONS (2)
  - OPTIC NEURITIS [None]
  - STRESS [None]
